FAERS Safety Report 16315277 (Version 1)
Quarter: 2019Q2

REPORT INFORMATION
  Report Type: Spontaneous
  Country: GB (occurrence: GB)
  Receive Date: 20190515
  Receipt Date: 20190515
  Transmission Date: 20190711
  Serious: Yes (Other)
  Sender: FDA-Public Use
  Company Number: GB-TEVA-2019-GB-1049231

PATIENT
  Age: 59 Year
  Sex: Male
  Weight: 92 kg

DRUGS (4)
  1. SALBUTAMOL [Concomitant]
     Active Substance: ALBUTEROL
     Route: 055
     Dates: start: 20190227, end: 20190228
  2. KEPPRA [Concomitant]
     Active Substance: LEVETIRACETAM
     Dates: start: 20180824
  3. ACETYLSALICYLIC ACID [Concomitant]
     Active Substance: ASPIRIN
     Dates: start: 20180824
  4. AMOXICILLIN. [Suspect]
     Active Substance: AMOXICILLIN
     Dates: start: 20190305, end: 20190312

REACTIONS (1)
  - Jaundice [Recovered/Resolved]
